FAERS Safety Report 10310064 (Version 1)
Quarter: 2014Q3

REPORT INFORMATION
  Report Type: Spontaneous
  Country: US (occurrence: None)
  Receive Date: 20140715
  Receipt Date: 20140715
  Transmission Date: 20150326
  Serious: Yes (Disabling)
  Sender: FDA-Public Use
  Company Number: None

PATIENT
  Age: 54 Year
  Sex: Male
  Weight: 72.58 kg

DRUGS (7)
  1. ENALAPRIL [Concomitant]
     Active Substance: ENALAPRIL
  2. LATUDA [Concomitant]
     Active Substance: LURASIDONE HYDROCHLORIDE
  3. FAMOTIDINE. [Concomitant]
     Active Substance: FAMOTIDINE
  4. ZOLDIEM(AMBIEN) [Concomitant]
  5. TAMSULOSIN [Concomitant]
     Active Substance: TAMSULOSIN
  6. MIRTAZAPINE. [Suspect]
     Active Substance: MIRTAZAPINE
     Indication: SLEEP DISORDER THERAPY
     Route: 048
     Dates: start: 20140605, end: 20140609
  7. CLONAZEPAM (KLONOPIN) [Concomitant]

REACTIONS (10)
  - Nausea [None]
  - Headache [None]
  - Constipation [None]
  - Dysphagia [None]
  - Micturition disorder [None]
  - Dyspnoea [None]
  - Middle insomnia [None]
  - Musculoskeletal discomfort [None]
  - Flatulence [None]
  - Somnolence [None]

NARRATIVE: CASE EVENT DATE: 20140605
